FAERS Safety Report 13697984 (Version 1)
Quarter: 2017Q2

REPORT INFORMATION
  Report Type: Spontaneous
  Country: US (occurrence: US)
  Receive Date: 20170628
  Receipt Date: 20170628
  Transmission Date: 20170830
  Serious: No
  Sender: FDA-Public Use
  Company Number: US-PFIZER INC-2017281182

PATIENT

DRUGS (4)
  1. DOCETAXEL. [Suspect]
     Active Substance: DOCETAXEL
     Dosage: UNK, FIRST ROUND
     Dates: start: 20110325, end: 20110708
  2. TAXOTERE [Suspect]
     Active Substance: DOCETAXEL
     Dosage: UNK, FIRST ROUND
     Dates: start: 20110325, end: 20110708
  3. DOCETAXEL. [Suspect]
     Active Substance: DOCETAXEL
     Dosage: UNK, SECOND ROUND
     Dates: start: 20140213, end: 20140414
  4. TAXOTERE [Suspect]
     Active Substance: DOCETAXEL
     Dosage: UNK, SECOND ROUND
     Dates: start: 20140213, end: 20140414

REACTIONS (1)
  - Alopecia [Not Recovered/Not Resolved]
